FAERS Safety Report 24891429 (Version 2)
Quarter: 2025Q2

REPORT INFORMATION
  Report Type: Spontaneous
  Country: US (occurrence: US)
  Receive Date: 20250127
  Receipt Date: 20250424
  Transmission Date: 20250716
  Serious: Yes (Other)
  Sender: PFIZER
  Company Number: US-PFIZER INC-202400331124

PATIENT
  Age: 71 Year
  Sex: Female
  Weight: 62.6 kg

DRUGS (5)
  1. XELJANZ XR [Suspect]
     Active Substance: TOFACITINIB CITRATE
     Indication: Rheumatoid arthritis
     Dosage: 11 MG, 1X/DAY IN THE MORNING
     Route: 048
  2. CELEBREX [Concomitant]
     Active Substance: CELECOXIB
     Indication: Osteoarthritis
     Route: 048
  3. HYDROCODONE [Concomitant]
     Active Substance: HYDROCODONE
     Indication: Back pain
     Dosage: 325 MG TABLET; HALF A TABLET IN THE MORNING AND HALF A TABLET WHEN GOES TO BED
     Route: 048
  4. XANAX [Concomitant]
     Active Substance: ALPRAZOLAM
     Indication: Anxiety
     Dosage: 0.05 MG, 3X/DAY
     Route: 048
  5. FERROUS [FERROUS SULFATE] [Concomitant]
     Indication: Blood iron decreased
     Dosage: TAKEN EVERY OTHER DAY

REACTIONS (2)
  - Pneumonia [Unknown]
  - Hernia [Unknown]

NARRATIVE: CASE EVENT DATE: 20241201
